FAERS Safety Report 18233268 (Version 1)
Quarter: 2020Q3

REPORT INFORMATION
  Report Type: Spontaneous
  Country: None (occurrence: US)
  Receive Date: 20200904
  Receipt Date: 20200904
  Transmission Date: 20201103
  Serious: Yes (Other)
  Sender: FDA-Public Use
  Company Number: US-OSMOTICA_PHARMACEUTICAL_US_LLC-POI0573202000415

PATIENT
  Age: 37 Year
  Sex: Male

DRUGS (11)
  1. VITAMIN E [Concomitant]
     Active Substance: .ALPHA.-TOCOPHEROL
     Indication: NUTRITIONAL SUPPLEMENTATION
  2. MODAFINIL. [Concomitant]
     Active Substance: MODAFINIL
     Indication: PRODUCT USED FOR UNKNOWN INDICATION
  3. OSMOLEX ER [Suspect]
     Active Substance: AMANTADINE
     Indication: TREMOR
     Dates: start: 202003, end: 202006
  4. MEMANTINE. [Concomitant]
     Active Substance: MEMANTINE
     Indication: PRODUCT USED FOR UNKNOWN INDICATION
  5. PROPRANOLOL [Concomitant]
     Active Substance: PROPRANOLOL HYDROCHLORIDE
     Indication: PRODUCT USED FOR UNKNOWN INDICATION
  6. MIRTAZPINE [Concomitant]
     Active Substance: MIRTAZAPINE
     Indication: PRODUCT USED FOR UNKNOWN INDICATION
  7. OSMOLEX ER [Suspect]
     Active Substance: AMANTADINE
     Indication: BRAIN NEOPLASM
  8. MULTIVITAMIN [Concomitant]
     Active Substance: VITAMINS
     Indication: NUTRITIONAL SUPPLEMENTATION
  9. TURMERIC [Concomitant]
     Active Substance: HERBALS\TURMERIC
     Indication: NUTRITIONAL SUPPLEMENTATION
  10. OSMOLEX ER [Suspect]
     Active Substance: AMANTADINE
     Indication: FATIGUE
  11. FISH OIL [Concomitant]
     Active Substance: FISH OIL
     Indication: NUTRITIONAL SUPPLEMENTATION

REACTIONS (2)
  - Hallucinations, mixed [Recovered/Resolved]
  - Off label use [Recovered/Resolved]

NARRATIVE: CASE EVENT DATE: 202003
